FAERS Safety Report 16353865 (Version 3)
Quarter: 2019Q2

REPORT INFORMATION
  Report Type: Report from Study
  Country: US (occurrence: US)
  Receive Date: 20190524
  Receipt Date: 20190611
  Transmission Date: 20190711
  Serious: Yes (Hospitalization, Other)
  Sender: FDA-Public Use
  Company Number: PHEH2019US021512

PATIENT
  Sex: Male

DRUGS (1)
  1. ENTRESTO [Suspect]
     Active Substance: SACUBITRIL\VALSARTAN
     Indication: PRODUCT USED FOR UNKNOWN INDICATION
     Dosage: UNK, BID
     Route: 048

REACTIONS (11)
  - Hernia [Unknown]
  - Craniocerebral injury [Unknown]
  - Brain oedema [Unknown]
  - Road traffic accident [Unknown]
  - Fracture [Unknown]
  - Drug ineffective [Unknown]
  - Memory impairment [Unknown]
  - Cough [Unknown]
  - Asthenia [Unknown]
  - Weight decreased [Recovering/Resolving]
  - Muscle strain [Unknown]
